FAERS Safety Report 5584257-X (Version None)
Quarter: 2008Q1

REPORT INFORMATION
  Report Type: 
  Country: None (occurrence: None)
  Receive Date: 20080108
  Receipt Date: 20080103
  Transmission Date: 20080703
  Serious: Yes (Other)
  Sender: FDA-Public Use
  Company Number: B0360448A

PATIENT
  Age: 42 Year
  Sex: Male

DRUGS (1)
  1. PAROXETINE HCL [Suspect]
     Indication: DEPRESSION
     Dosage: 20MG PER DAY
     Route: 065
     Dates: start: 19980909

REACTIONS (9)
  - AGGRESSION [None]
  - CONFUSIONAL STATE [None]
  - DEPRESSED MOOD [None]
  - FATIGUE [None]
  - HALLUCINATION [None]
  - INSOMNIA [None]
  - MALAISE [None]
  - SUICIDAL IDEATION [None]
  - WITHDRAWAL SYNDROME [None]
